FAERS Safety Report 12161381 (Version 1)
Quarter: 2016Q1

REPORT INFORMATION
  Report Type: Report from Study
  Country: US (occurrence: US)
  Receive Date: 20160308
  Receipt Date: 20160308
  Transmission Date: 20160526
  Serious: No
  Sender: FDA-Public Use
  Company Number: US-AMGEN-USASL2016026391

PATIENT
  Age: 53 Year
  Sex: Female

DRUGS (1)
  1. ENBREL [Suspect]
     Active Substance: ETANERCEPT
     Indication: PRODUCT USED FOR UNKNOWN INDICATION
     Dosage: 25 MG, QWK
     Route: 065

REACTIONS (14)
  - Erythema [Unknown]
  - Pain [Not Recovered/Not Resolved]
  - Injection site erythema [Not Recovered/Not Resolved]
  - Oropharyngeal pain [Unknown]
  - Influenza [Unknown]
  - Injection site pruritus [Unknown]
  - Pruritus [Unknown]
  - Local swelling [Unknown]
  - Injection site pain [Unknown]
  - Muscle spasms [Not Recovered/Not Resolved]
  - Tenderness [Unknown]
  - Injection site reaction [Unknown]
  - Injection site swelling [Unknown]
  - Arthropathy [Unknown]

NARRATIVE: CASE EVENT DATE: 2016
